FAERS Safety Report 18653793 (Version 1)
Quarter: 2020Q4

REPORT INFORMATION
  Report Type: Spontaneous
  Country: US (occurrence: AU)
  Receive Date: 20201222
  Receipt Date: 20201222
  Transmission Date: 20210114
  Serious: Yes (Other)
  Sender: FDA-Public Use
  Company Number: None

PATIENT
  Age: 35 Year
  Sex: Male
  Weight: 99.79 kg

DRUGS (1)
  1. LEVETIRACETAM 750MG [Suspect]
     Active Substance: LEVETIRACETAM
     Indication: IDIOPATHIC GENERALISED EPILEPSY
     Route: 048
     Dates: start: 20200901

REACTIONS (5)
  - Contusion [None]
  - Seizure [None]
  - Product substitution issue [None]
  - Swollen tongue [None]
  - Vomiting [None]

NARRATIVE: CASE EVENT DATE: 20201102
